FAERS Safety Report 5950373-3 (Version None)
Quarter: 2008Q4

REPORT INFORMATION
  Report Type: 
  Country: None (occurrence: None)
  Receive Date: 20081112
  Receipt Date: 20081106
  Transmission Date: 20090506
  Serious: Yes (Hospitalization, Other)
  Sender: FDA-Public Use
  Company Number: PHHY2008DE10459

PATIENT
  Age: 70 Year

DRUGS (5)
  1. DIOVAN [Suspect]
     Dosage: 160 MG, UNK
     Dates: start: 20010101
  2. DIURETIKUM VERLA [Concomitant]
  3. DAIVONEX [Concomitant]
  4. BETAMETHASONE [Concomitant]
  5. EUCERIN [Concomitant]

REACTIONS (6)
  - ADVERSE REACTION [None]
  - CONJUNCTIVITIS [None]
  - HEPATIC CONGESTION [None]
  - NO THERAPEUTIC RESPONSE [None]
  - PSORIASIS [None]
  - SURGERY [None]
